FAERS Safety Report 15868066 (Version 1)
Quarter: 2019Q1

REPORT INFORMATION
  Report Type: Spontaneous
  Country: US (occurrence: US)
  Receive Date: 20190125
  Receipt Date: 20190125
  Transmission Date: 20190417
  Serious: Yes (Other)
  Sender: FDA-Public Use
  Company Number: None

PATIENT
  Age: 61 Year
  Sex: Male
  Weight: 78.75 kg

DRUGS (2)
  1. CLOBETASOL PROPIONATE CREAM [Concomitant]
     Active Substance: CLOBETASOL PROPIONATE
  2. MAVYRET [Suspect]
     Active Substance: GLECAPREVIR\PIBRENTASVIR
     Indication: HEPATITIS C
     Dosage: ?          QUANTITY:3 TABLET(S);?
     Route: 048
     Dates: start: 20180313, end: 20180604

REACTIONS (8)
  - Eczema [None]
  - Blister [None]
  - Abdominal wound dehiscence [None]
  - Headache [None]
  - Itching scar [None]
  - Rash [None]
  - Breast discharge [None]
  - Haemorrhage [None]

NARRATIVE: CASE EVENT DATE: 20180320
